FAERS Safety Report 6335068-9 (Version None)
Quarter: 2009Q3

REPORT INFORMATION
  Report Type: 
  Country: None (occurrence: None)
  Receive Date: 20090831
  Receipt Date: 20090825
  Transmission Date: 20100115
  Serious: Yes (Death)
  Sender: FDA-Public Use
  Company Number: A0804886A

PATIENT
  Sex: Female
  Weight: 64 kg

DRUGS (4)
  1. SERETIDE [Suspect]
     Dosage: 1PUFF TWICE PER DAY
     Route: 055
     Dates: start: 20090401, end: 20090719
  2. SPIRIVA [Concomitant]
     Dosage: 1U PER DAY
     Dates: start: 20050101, end: 20090719
  3. ATROVENT [Concomitant]
     Dosage: 20DROP THREE TIMES PER DAY
     Dates: start: 20050101, end: 20090719
  4. BEROTEC [Concomitant]
     Dosage: 8DROP THREE TIMES PER DAY
     Dates: start: 20050101, end: 20090719

REACTIONS (1)
  - RESPIRATORY TRACT INFECTION [None]
